FAERS Safety Report 25665424 (Version 1)
Quarter: 2025Q3

REPORT INFORMATION
  Report Type: Spontaneous
  Country: CN (occurrence: CN)
  Receive Date: 20250811
  Receipt Date: 20250811
  Transmission Date: 20251021
  Serious: Yes (Hospitalization, Other)
  Sender: BAYER HEALTHCARE PHARMACEUTICALS INC.
  Company Number: CN-BAYER-2025A104858

PATIENT
  Age: 57 Year
  Sex: Male
  Weight: 50 kg

DRUGS (3)
  1. AVELOX [Suspect]
     Active Substance: MOXIFLOXACIN HYDROCHLORIDE
     Indication: Pulmonary tuberculosis
     Dosage: 0.4 G, QD
     Route: 048
     Dates: start: 20250716, end: 20250806
  2. PYRAZINAMIDE [Suspect]
     Active Substance: PYRAZINAMIDE
     Indication: Pulmonary tuberculosis
     Dosage: 1.5 G, QD
     Route: 048
     Dates: start: 20250716, end: 20250806
  3. CYCLOSERINE [Suspect]
     Active Substance: CYCLOSERINE
     Indication: Pulmonary tuberculosis
     Dosage: 750 MG, QD
     Route: 048
     Dates: start: 20250716, end: 20250806

REACTIONS (8)
  - Nausea [Recovering/Resolving]
  - Dizziness [Recovering/Resolving]
  - Asthenia [Recovering/Resolving]
  - Vomiting [Recovering/Resolving]
  - Food aversion [None]
  - General physical health deterioration [None]
  - Product prescribing issue [None]
  - Product use in unapproved indication [None]

NARRATIVE: CASE EVENT DATE: 20250701
